FAERS Safety Report 7407960-5 (Version None)
Quarter: 2011Q2

REPORT INFORMATION
  Report Type: 
  Country: None (occurrence: None)
  Receive Date: 20110412
  Receipt Date: 20110331
  Transmission Date: 20111010
  Serious: No
  Sender: FDA-Public Use
  Company Number: US-PFIZER INC-US-WYE-H17207510

PATIENT
  Sex: Female

DRUGS (1)
  1. PRISTIQ [Suspect]
     Dosage: UNKNOWN
     Route: 065
     Dates: start: 20100801

REACTIONS (5)
  - DIARRHOEA [None]
  - ABDOMINAL DISCOMFORT [None]
  - ANXIETY [None]
  - INSOMNIA [None]
  - NAUSEA [None]
